FAERS Safety Report 12275914 (Version 3)
Quarter: 2016Q3

REPORT INFORMATION
  Report Type: Spontaneous
  Country: GB (occurrence: GB)
  Receive Date: 20160418
  Receipt Date: 20160801
  Transmission Date: 20161109
  Serious: Yes (Death, Hospitalization, Disabling)
  Sender: FDA-Public Use
  Company Number: GB-ACCORD-030344

PATIENT
  Age: 46 Year
  Sex: Male

DRUGS (3)
  1. CISPLATIN. [Suspect]
     Active Substance: CISPLATIN
     Indication: LARYNGEAL CANCER
     Dates: start: 201503
  2. GRANULOKINE [Concomitant]
     Active Substance: FILGRASTIM
     Indication: NEUTROPENIA
     Dosage: FILGRASTIM
     Dates: start: 201504
  3. ZAPONEX [Suspect]
     Active Substance: CLOZAPINE
     Indication: PRODUCT USED FOR UNKNOWN INDICATION
     Dosage: RECEIVED AT NIGHT. LAST ADMINISTRATION DATE 20-MAR-2016.SWITCHED TO SUSPENSION MAY/JUN 2015
     Route: 048
     Dates: start: 20081124, end: 20150417

REACTIONS (15)
  - Neutropenia [Recovered/Resolved]
  - Laryngeal cancer stage IV [Fatal]
  - Lymphopenia [Not Recovered/Not Resolved]
  - Metastases to lymph nodes [Not Recovered/Not Resolved]
  - Leukopenia [Recovered/Resolved]
  - Drug effect incomplete [Not Recovered/Not Resolved]
  - White blood cell count decreased [Recovered/Resolved]
  - Neutrophil count decreased [Recovered/Resolved]
  - Haemoglobin decreased [Unknown]
  - Neutrophil count increased [Not Recovered/Not Resolved]
  - Platelet count decreased [Recovered/Resolved]
  - Product use issue [Not Recovered/Not Resolved]
  - Platelet count increased [Recovered/Resolved]
  - White blood cell count increased [Not Recovered/Not Resolved]
  - Off label use [Unknown]

NARRATIVE: CASE EVENT DATE: 20141223
